FAERS Safety Report 5731828-3 (Version None)
Quarter: 2008Q2

REPORT INFORMATION
  Report Type: 
  Country: None (occurrence: None)
  Receive Date: 20080508
  Receipt Date: 20080505
  Transmission Date: 20081010
  Serious: Yes (Death, Life-Threatening, Hospitalization, Disabling, Other)
  Sender: FDA-Public Use
  Company Number: A0726195A

PATIENT
  Age: 54 Year
  Sex: Male

DRUGS (4)
  1. EPZICOM [Suspect]
     Indication: HIV INFECTION
     Dosage: 1TAB PER DAY
     Route: 048
  2. DARUNAVIR [Concomitant]
  3. NORVIR [Concomitant]
  4. FOSAMAX [Concomitant]

REACTIONS (1)
  - MYOCARDIAL INFARCTION [None]
